FAERS Safety Report 5533216-1 (Version None)
Quarter: 2007Q4

REPORT INFORMATION
  Report Type: 
  Country: None (occurrence: None)
  Receive Date: 20071204
  Receipt Date: 20071129
  Transmission Date: 20080405
  Serious: Yes (Death)
  Sender: FDA-Public Use
  Company Number: GB-MERCK-0710GBR00091

PATIENT
  Age: 55 Year
  Sex: Male

DRUGS (2)
  1. JANUVIA [Suspect]
     Indication: DIABETES MELLITUS
     Route: 048
     Dates: start: 20070928
  2. METFORMIN [Concomitant]
     Route: 065

REACTIONS (1)
  - PULMONARY EMBOLISM [None]
